FAERS Safety Report 7648173-1 (Version None)
Quarter: 2011Q3

REPORT INFORMATION
  Report Type: 
  Country: None (occurrence: None)
  Receive Date: 20110801
  Receipt Date: 20110721
  Transmission Date: 20111222
  Serious: Yes (Other)
  Sender: FDA-Public Use
  Company Number: JP-ASTRAZENECA-2011SE43568

PATIENT
  Age: 43 Year
  Sex: Female

DRUGS (2)
  1. IRESSA [Suspect]
     Route: 048
  2. IRESSA [Suspect]
     Indication: NON-SMALL CELL LUNG CANCER
     Route: 048
     Dates: start: 20100701

REACTIONS (1)
  - MENTAL DISORDER [None]
